FAERS Safety Report 5346111-8 (Version None)
Quarter: 2007Q2

REPORT INFORMATION
  Report Type: 
  Country: None (occurrence: None)
  Receive Date: 20070427
  Receipt Date: 20070214
  Transmission Date: 20071010
  Serious: No
  Sender: FDA-Public Use
  Company Number: 2007-US-000178

PATIENT
  Age: 8 Year
  Sex: Female

DRUGS (3)
  1. INCRELEX [Suspect]
     Indication: INSULIN-LIKE GROWTH FACTOR DECREASED
     Dosage: 20 UG/KG, BID, SUBCUTANEOUS
     Route: 058
     Dates: start: 20070101
  2. RITALIN [Concomitant]
  3. TOPAMAX [Concomitant]

REACTIONS (1)
  - INJECTION SITE RASH [None]
